FAERS Safety Report 15504830 (Version 4)
Quarter: 2019Q1

REPORT INFORMATION
  Report Type: Spontaneous
  Country: US (occurrence: US)
  Receive Date: 20181016
  Receipt Date: 20190115
  Transmission Date: 20190417
  Serious: No
  Sender: FDA-Public Use
  Company Number: US-SA-2018SA285033

PATIENT
  Sex: Male
  Weight: 48.08 kg

DRUGS (5)
  1. REPATHA [Concomitant]
     Active Substance: EVOLOCUMAB
  2. VITAMINE C [Concomitant]
     Active Substance: ASCORBIC ACID
  3. CIALIS [Concomitant]
     Active Substance: TADALAFIL
  4. FISH OIL [Concomitant]
     Active Substance: FISH OIL
  5. PRALUENT [Suspect]
     Active Substance: ALIROCUMAB
     Indication: HYPERCHOLESTEROLAEMIA
     Dosage: 75 MG, UNK
     Route: 058

REACTIONS (1)
  - Injection site rash [Unknown]
